FAERS Safety Report 12717761 (Version 2)
Quarter: 2016Q3

REPORT INFORMATION
  Report Type: Spontaneous
  Country: IT (occurrence: IT)
  Receive Date: 20160906
  Receipt Date: 20160916
  Transmission Date: 20161109
  Serious: Yes (Hospitalization)
  Sender: FDA-Public Use
  Company Number: IT-MYLANLABS-2016M1036983

PATIENT

DRUGS (2)
  1. CARDIOASPIRIN [Interacting]
     Active Substance: ASPIRIN
     Indication: THROMBOSIS PROPHYLAXIS
     Dosage: 100 MG, QD
     Route: 048
     Dates: start: 20160101
  2. IBUPROFEN. [Suspect]
     Active Substance: IBUPROFEN
     Indication: PAIN
     Dosage: 1 DF, QD
     Route: 048
     Dates: start: 20160710

REACTIONS (3)
  - Syncope [Unknown]
  - Labelled drug-drug interaction medication error [Unknown]
  - Haematemesis [Unknown]

NARRATIVE: CASE EVENT DATE: 20160713
